FAERS Safety Report 12921702 (Version 1)
Quarter: 2016Q4

REPORT INFORMATION
  Report Type: Spontaneous
  Country: TW (occurrence: TW)
  Receive Date: 20161108
  Receipt Date: 20161108
  Transmission Date: 20170207
  Serious: Yes (Death, Hospitalization, Other)
  Sender: FDA-Public Use
  Company Number: TW-AMGEN-TWNSP2016156004

PATIENT
  Age: 62 Year
  Sex: Female

DRUGS (5)
  1. MTX [Concomitant]
     Active Substance: METHOTREXATE SODIUM
     Dosage: 1 DF, THREE TIMES PER WEEK (TIW)
     Route: 048
  2. PLAQUENIL [Concomitant]
     Active Substance: HYDROXYCHLOROQUINE SULFATE
     Dosage: 1 DF, 2X/DAY
     Route: 048
  3. ARCOXIA [Concomitant]
     Active Substance: ETORICOXIB
     Dosage: 1 DF, 1X/DAY
     Route: 048
  4. ENBREL [Suspect]
     Active Substance: ETANERCEPT
     Indication: RHEUMATOID ARTHRITIS
     Dosage: 25 MG, 2X/WEEK
     Route: 058
     Dates: start: 20120706
  5. DONISON [Concomitant]
     Dosage: 1 DF, 2X/DAY
     Route: 048

REACTIONS (3)
  - Acute respiratory failure [Fatal]
  - Septic shock [Fatal]
  - Gastroenteritis salmonella [Fatal]

NARRATIVE: CASE EVENT DATE: 201607
